FAERS Safety Report 5089462-7 (Version None)
Quarter: 2006Q3

REPORT INFORMATION
  Report Type: 
  Country: None (occurrence: None)
  Receive Date: 20060727
  Receipt Date: 20060606
  Transmission Date: 20061208
  Serious: Yes (Other)
  Sender: FDA-Public Use
  Company Number: 2006060567

PATIENT
  Sex: 0

DRUGS (3)
  1. LYRICA [Suspect]
     Indication: TRIGEMINAL NEURALGIA
     Dosage: 200 MG (100 MG, BID INTERVAL: EVERY DAY), ORAL
     Route: 048
     Dates: start: 20060314, end: 20060328
  2. CELEXA [Concomitant]
  3. PRILOSEC [Concomitant]

REACTIONS (1)
  - RASH [None]
